FAERS Safety Report 6585176-2 (Version None)
Quarter: 2010Q1

REPORT INFORMATION
  Report Type: 
  Country: None (occurrence: None)
  Receive Date: 20100217
  Receipt Date: 20100209
  Transmission Date: 20100710
  Serious: Yes (Death)
  Sender: FDA-Public Use
  Company Number: US-ROCHE-685624

PATIENT
  Sex: Male
  Weight: 67.1 kg

DRUGS (3)
  1. BEVACIZUMAB [Suspect]
     Indication: NON-SMALL CELL LUNG CANCER
     Dosage: DOSE, FREQUENCY UNSPECIFIED. LAST DATE OF ADMINISTRATION:28 AUGUST 2009.
     Route: 065
     Dates: start: 20090515
  2. PEMETREXED [Suspect]
     Indication: NON-SMALL CELL LUNG CANCER
     Dosage: DOSE, FREQUENCY UNSPECIFIED. LAST DOSE ADMINISTRATION DATE:28 AUGUST 2009.
     Route: 065
     Dates: start: 20090515
  3. CARBOPLATIN [Suspect]
     Indication: NON-SMALL CELL LUNG CANCER
     Dosage: DOSE, FREQUENCY UNSPECIFIED. LAST ADMINISTRATION DATE:28 AUGUST 2009.TOTAL 6 CYCLES.
     Route: 065
     Dates: start: 20090515

REACTIONS (1)
  - DEATH [None]
